FAERS Safety Report 8494035 (Version 2)
Quarter: 2013Q2

REPORT INFORMATION
  Report Type: Report from Study
  Country: MX (occurrence: MX)
  Receive Date: 20120404
  Receipt Date: 20130424
  Transmission Date: 20140414
  Serious: Yes (Death, Hospitalization, Other)
  Sender: FDA-Public Use
  Company Number: PHHY2012MX028275

PATIENT
  Age: 73 Year
  Sex: Female

DRUGS (6)
  1. ACLASTA [Suspect]
     Indication: OSTEOPOROSIS
     Dosage: 5 MG/100ML ONCE A YEAR
     Route: 042
     Dates: start: 201103
  2. METHOTREXATE [Concomitant]
     Indication: SCLERODERMA
     Dosage: 500 MG, QW (500 MG ONCE A WEEK)
     Dates: start: 2006
  3. SALBUTAMOL [Concomitant]
     Indication: ASTHMA
     Dosage: ONCE (AND IF NECCESSARY TWICE A DAY) DAILY
     Dates: start: 2006
  4. OMEPRAZOL [Concomitant]
     Indication: GASTRITIS
     Dosage: UNK
  5. DICLOFENAC [Concomitant]
     Indication: PAIN
     Dosage: UNK
  6. CALCIUM EFFERVESCENT TABLET [Concomitant]
     Indication: OSTEOPOROSIS
     Dosage: CALCIUM EFFERVESCENT TABLETS A DAY
     Dates: end: 201103

REACTIONS (4)
  - Renal failure [Fatal]
  - Hypotension [Unknown]
  - Blood glucose decreased [Unknown]
  - Cardio-respiratory arrest [Unknown]
